FAERS Safety Report 7950388-X (Version None)
Quarter: 2011Q4

REPORT INFORMATION
  Report Type: 
  Country: None (occurrence: None)
  Receive Date: 20111130
  Receipt Date: 20111125
  Transmission Date: 20120403
  Serious: Yes (Other)
  Sender: FDA-Public Use
  Company Number: DE-PFIZER INC-2011263489

PATIENT
  Age: 59 Year
  Sex: Male

DRUGS (13)
  1. BISOPROLOL [Concomitant]
     Dosage: UNK
  2. MARCUMAR [Concomitant]
     Dosage: UNK
  3. PREDNISONE [Concomitant]
     Dosage: UNK
  4. GLIBENCLAMIDE [Concomitant]
     Dosage: UNK
  5. TORASEMIDE [Concomitant]
     Dosage: UNK
  6. HYDROCHLOROTHIAZID [Concomitant]
     Dosage: UNK
  7. TRACLEER [Concomitant]
     Dosage: UNK
  8. PANTOPRAZOLE SODIUM [Concomitant]
     Dosage: UNK
  9. PROBENECID [Concomitant]
     Dosage: UNK
  10. REVATIO [Suspect]
     Indication: PULMONARY HYPERTENSION
     Dosage: UNK
  11. LYRICA [Suspect]
     Indication: POLYNEUROPATHY
     Dosage: 75 MG, 1X/DAY
     Route: 048
     Dates: start: 20111007, end: 20111024
  12. METFORMIN [Concomitant]
     Dosage: 1000, UNK
  13. TAMSULOSIN [Concomitant]
     Dosage: UNK

REACTIONS (2)
  - DRUG EFFECT DECREASED [None]
  - DIPLOPIA [None]
